FAERS Safety Report 16723755 (Version 1)
Quarter: 2019Q3

REPORT INFORMATION
  Report Type: Spontaneous
  Country: DE (occurrence: DE)
  Receive Date: 20190821
  Receipt Date: 20190821
  Transmission Date: 20191005
  Serious: Yes (Congenital Anomaly, Other)
  Sender: FDA-Public Use
  Company Number: DE-HIKMA PHARMACEUTICALS USA INC.-DE-H14001-19-46558

PATIENT
  Age: 1 Day
  Sex: Male
  Weight: 3.81 kg

DRUGS (2)
  1. LEVETIRACETAM. [Suspect]
     Active Substance: LEVETIRACETAM
     Indication: EPILEPSY
     Dosage: 3000 [MG/D ] 2 SEPARATED DOSES
     Route: 064
     Dates: start: 20180125, end: 20181109
  2. LACOSAMIDE. [Suspect]
     Active Substance: LACOSAMIDE
     Indication: EPILEPSY
     Dosage: 300 [MG/D ] 2 SEPARATED DOSES
     Route: 064
     Dates: start: 20180125, end: 20181109

REACTIONS (5)
  - Foetal exposure during pregnancy [Recovered/Resolved]
  - Anomaly of external ear congenital [Not Recovered/Not Resolved]
  - Congenital hypoplasia of depressor angularis oris muscle [Unknown]
  - Acoustic stimulation tests abnormal [Unknown]
  - Atrial septal defect [Unknown]

NARRATIVE: CASE EVENT DATE: 20181109
